FAERS Safety Report 6416002-X (Version None)
Quarter: 2009Q4

REPORT INFORMATION
  Report Type: 
  Country: None (occurrence: None)
  Receive Date: 20091022
  Receipt Date: 20091007
  Transmission Date: 20100525
  Serious: Yes (Hospitalization, Disabling)
  Sender: FDA-Public Use
  Company Number: 1000009122

PATIENT
  Age: 50 Year
  Sex: Female
  Weight: 70 kg

DRUGS (4)
  1. ESCITALOPRAM [Suspect]
     Indication: DEPRESSION
     Dosage: 10 MG (10 MG,1 IN 1 D),ORAL
     Route: 048
     Dates: start: 20090119, end: 20090123
  2. CITALOPRAM (CITALOPRAM HYDROBROMIDE) (CITALOPRAM HYDROBROMIDE) [Concomitant]
  3. DERINOX (NASAL DROPS (INCLUDING NASAL SPRAY) [Concomitant]
  4. RELPAX [Concomitant]

REACTIONS (6)
  - AORTIC ARTERIOSCLEROSIS [None]
  - AORTIC VALVE INCOMPETENCE [None]
  - CEREBRAL HAEMATOMA [None]
  - HEMIANOPIA HOMONYMOUS [None]
  - HEMIPLEGIA [None]
  - HYPOAESTHESIA [None]
